FAERS Safety Report 8232732-1 (Version None)
Quarter: 2012Q1

REPORT INFORMATION
  Report Type: 
  Country: None (occurrence: None)
  Receive Date: 20120323
  Receipt Date: 20120321
  Transmission Date: 20120608
  Serious: Yes (Death, Hospitalization)
  Sender: FDA-Public Use
  Company Number: JP-B.I. PHARMACEUTICALS,INC./RIDGEFIELD-2012-BP-04903NB

PATIENT
  Age: 91 Year
  Sex: Female

DRUGS (6)
  1. ASPIRIN [Concomitant]
     Indication: CEREBRAL INFARCTION
     Dosage: 100 MG
     Route: 048
  2. MIRAPEX [Suspect]
     Indication: MUSCLE RIGIDITY
     Route: 048
     Dates: start: 20120104, end: 20120125
  3. LEVOTHYROXINE SODIUM [Concomitant]
     Indication: HYPOTHYROIDISM
     Dosage: 25 MG
     Route: 048
  4. MIRAPEX [Suspect]
     Route: 048
     Dates: start: 20120126, end: 20120224
  5. MIRAPEX [Suspect]
     Route: 048
     Dates: start: 20120225, end: 20120303
  6. LASIX [Concomitant]
     Indication: HYPERTENSION
     Dosage: 20 MG
     Route: 048

REACTIONS (3)
  - DIARRHOEA [None]
  - DEHYDRATION [None]
  - NIGHT SWEATS [None]
